FAERS Safety Report 17454455 (Version 1)
Quarter: 2020Q1

REPORT INFORMATION
  Report Type: Spontaneous
  Country: US (occurrence: US)
  Receive Date: 20200211
  Receipt Date: 20200211
  Transmission Date: 20200409
  Serious: Yes (Other)
  Sender: FDA-Public Use
  Company Number: None

PATIENT
  Age: 74 Year
  Sex: Female
  Weight: 56.25 kg

DRUGS (6)
  1. MULTIVITAMIN [Concomitant]
     Active Substance: VITAMINS
  2. 0.01% ESTRADIOL VAGINAL CREAM USP [Suspect]
     Active Substance: ESTRADIOL
     Indication: BACTERIAL VAGINOSIS
     Dosage: ?          QUANTITY:1 APPLICATOR FUL T;OTHER FREQUENCY:ONCE NIGHTLY;OTHER ROUTE:SKIN?
     Dates: start: 20200117, end: 20200118
  3. VITAMIN D [Concomitant]
     Active Substance: VITAMIN D NOS
  4. GLUCOSAMINE HCL [Concomitant]
     Active Substance: GLUCOSAMINE
  5. VITAMIN C [Concomitant]
     Active Substance: ASCORBIC ACID
  6. PREMARIN [Concomitant]
     Active Substance: ESTROGENS, CONJUGATED

REACTIONS (1)
  - Palpitations [None]

NARRATIVE: CASE EVENT DATE: 20200117
